FAERS Safety Report 7375781-8 (Version None)
Quarter: 2011Q1

REPORT INFORMATION
  Report Type: 
  Country: None (occurrence: None)
  Receive Date: 20110325
  Receipt Date: 20110316
  Transmission Date: 20110831
  Serious: Yes (Hospitalization)
  Sender: FDA-Public Use
  Company Number: A0751440A

PATIENT
  Age: 49 Year
  Sex: Male

DRUGS (4)
  1. COREG [Concomitant]
  2. CYCLOBENZAPRINE [Concomitant]
  3. AVANDIA [Suspect]
     Dosage: 4MG AT NIGHT
     Route: 048
     Dates: start: 20050101, end: 20070101
  4. INSULIN [Concomitant]

REACTIONS (3)
  - INTRACARDIAC THROMBUS [None]
  - MYOCARDIAL INFARCTION [None]
  - CARDIAC FAILURE CONGESTIVE [None]
